FAERS Safety Report 7472566-9 (Version None)
Quarter: 2011Q2

REPORT INFORMATION
  Report Type: 
  Country: None (occurrence: None)
  Receive Date: 20110511
  Receipt Date: 20110422
  Transmission Date: 20111010
  Serious: No
  Sender: FDA-Public Use
  Company Number: US-B.I. PHARMACEUTICALS,INC./RIDGEFIELD-2011-BP-01165BP

PATIENT
  Age: 85 Year
  Sex: Female

DRUGS (2)
  1. PRADAXA [Suspect]
     Indication: ATRIAL FIBRILLATION
     Dosage: 300 MG
     Route: 048
     Dates: start: 20101210
  2. METOPROLOL SUCCINATE EXTENDED RELEASE [Concomitant]
     Dosage: 25 MG

REACTIONS (4)
  - VISUAL IMPAIRMENT [None]
  - DIZZINESS [None]
  - FATIGUE [None]
  - BALANCE DISORDER [None]
